FAERS Safety Report 18523878 (Version 3)
Quarter: 2021Q1

REPORT INFORMATION
  Report Type: Report from Study
  Country: IL (occurrence: IL)
  Receive Date: 20201119
  Receipt Date: 20210128
  Transmission Date: 20210419
  Serious: Yes (Hospitalization, Other)
  Sender: FDA-Public Use
  Company Number: IL-KARYOPHARM THERAPEUTICS, INC.-2020KPT001369

PATIENT
  Age: 71 Year
  Sex: Male
  Weight: 80.8 kg

DRUGS (9)
  1. CARTIA [Concomitant]
     Indication: HYPERTENSION
     Dosage: 100 MG, QD
     Dates: start: 2010
  2. LITORVA [Concomitant]
     Active Substance: ATORVASTATIN CALCIUM
     Indication: HYPERLIPIDAEMIA
     Dosage: 10 MG, QD
     Dates: start: 2015
  3. FAMOTIDINE TEVA [Concomitant]
     Active Substance: FAMOTIDINE
     Indication: DYSPEPSIA
     Dosage: 20 MG, QD
     Dates: start: 2019
  4. LOSARDEX [Concomitant]
     Active Substance: LOSARTAN POTASSIUM
     Indication: HYPERTENSION
     Dosage: 12.5 MG, QD
     Dates: start: 2015
  5. SIRAN [Concomitant]
     Indication: CHRONIC OBSTRUCTIVE PULMONARY DISEASE
     Dosage: 200 MG, TID
     Dates: start: 2015
  6. SELINEXOR [Suspect]
     Active Substance: SELINEXOR
     Dosage: 100 UNK
     Route: 048
     Dates: start: 20201123
  7. SELINEXOR [Suspect]
     Active Substance: SELINEXOR
     Indication: NON-SMALL CELL LUNG CANCER
     Dosage: 100 MG, WEEKLY
     Route: 048
     Dates: start: 20201109
  8. SPIRIVA [Concomitant]
     Active Substance: TIOTROPIUM BROMIDE MONOHYDRATE
     Indication: CHRONIC OBSTRUCTIVE PULMONARY DISEASE
     Dosage: 18 UG, QD
     Dates: start: 2015
  9. CARDILOC [Concomitant]
     Active Substance: BISOPROLOL FUMARATE
     Indication: HYPERTENSION
     Dosage: 0.25 MG, QD
     Dates: start: 2019

REACTIONS (2)
  - Overdose [Not Recovered/Not Resolved]
  - Hypophosphataemia [Recovered/Resolved]

NARRATIVE: CASE EVENT DATE: 202011
